FAERS Safety Report 9906910 (Version 3)
Quarter: 2015Q3

REPORT INFORMATION
  Report Type: Spontaneous
  Country: US (occurrence: US)
  Receive Date: 20140218
  Receipt Date: 20150812
  Transmission Date: 20151125
  Serious: Yes (Hospitalization)
  Sender: FDA-Public Use
  Company Number: US-GILEAD-2012-0054489

PATIENT
  Age: 49 Year
  Sex: Female
  Weight: 109 kg

DRUGS (3)
  1. LETAIRIS [Suspect]
     Active Substance: AMBRISENTAN
     Indication: PULMONARY ARTERIAL HYPERTENSION
     Dosage: 5 MG, UNK
     Route: 048
     Dates: start: 20120406
  2. REVATIO [Suspect]
     Active Substance: SILDENAFIL CITRATE
  3. TYVASO [Suspect]
     Active Substance: TREPROSTINIL
     Indication: PULMONARY ARTERIAL HYPERTENSION
     Dosage: UNK
     Dates: start: 20110729

REACTIONS (2)
  - Fluid retention [Not Recovered/Not Resolved]
  - Fluid overload [Not Recovered/Not Resolved]

NARRATIVE: CASE EVENT DATE: 20120420
